FAERS Safety Report 8802136 (Version 2)
Quarter: 2015Q1

REPORT INFORMATION
  Report Type: Report from Study
  Country: US (occurrence: US)
  Receive Date: 20120921
  Receipt Date: 20150303
  Transmission Date: 20150721
  Serious: Yes (Death)
  Sender: FDA-Public Use
  Company Number: US-ROCHE-1103405

PATIENT
  Sex: Male

DRUGS (3)
  1. MESNA. [Concomitant]
     Active Substance: MESNA
  2. IFEX [Concomitant]
     Active Substance: IFOSFAMIDE
  3. AVASTIN [Suspect]
     Active Substance: BEVACIZUMAB
     Indication: RENAL CANCER
     Route: 065

REACTIONS (2)
  - Off label use [Unknown]
  - Death [Fatal]
